FAERS Safety Report 9386397 (Version 1)
Quarter: 2013Q3

REPORT INFORMATION
  Report Type: Spontaneous
  Country: US (occurrence: None)
  Receive Date: 20130703
  Receipt Date: 20130703
  Transmission Date: 20140515
  Serious: Yes (Death)
  Sender: FDA-Public Use
  Company Number: None

PATIENT
  Age: 90 Year
  Sex: Male
  Weight: 67.59 kg

DRUGS (4)
  1. ALEVE [Suspect]
     Indication: DEMENTIA
     Dosage: 10MG 1/DAY ORAL
     Route: 048
  2. NAMENDA [Concomitant]
  3. TRAMADOL [Concomitant]
  4. ACETAMINAPHEN [Concomitant]

REACTIONS (1)
  - Vomiting [None]
